FAERS Safety Report 8193671 (Version 2)
Quarter: 2013Q3

REPORT INFORMATION
  Report Type: Spontaneous
  Country: CA (occurrence: CA)
  Receive Date: 20111021
  Receipt Date: 20130826
  Transmission Date: 20140515
  Serious: Yes (Hospitalization, Other)
  Sender: FDA-Public Use
  Company Number: CA-ROCHE-1001897

PATIENT
  Age: 88 Year
  Sex: Male
  Weight: 67 kg

DRUGS (14)
  1. CELLCEPT [Suspect]
     Indication: PRODUCT USED FOR UNKNOWN INDICATION
     Route: 065
     Dates: end: 20110607
  2. IMMUNE GLOBULIN [Suspect]
     Indication: PEMPHIGOID
     Route: 042
     Dates: start: 20110521, end: 20110523
  3. IMMUNE GLOBULIN [Suspect]
     Route: 042
     Dates: start: 20110601, end: 20110603
  4. PREDNISONE [Concomitant]
     Route: 065
     Dates: start: 20110601
  5. MEXILETINE [Concomitant]
     Route: 065
     Dates: start: 20110525
  6. DOCUSATE SODIUM [Concomitant]
     Route: 065
     Dates: start: 20110525
  7. SENNOSIDES A AND B [Concomitant]
     Route: 065
     Dates: start: 20110525
  8. METHADONE [Concomitant]
     Route: 065
     Dates: start: 20110525
  9. PARACETAMOL [Concomitant]
     Route: 065
     Dates: start: 20110525
  10. LYRICA [Concomitant]
     Route: 065
     Dates: start: 20110525
  11. METHYLPHENIDATE [Concomitant]
     Route: 065
     Dates: start: 20110525
  12. VITACALCIN [Concomitant]
     Route: 065
     Dates: start: 20110519
  13. LACTULOSE [Concomitant]
     Route: 065
     Dates: start: 20101111
  14. ACETAMINOPHEN [Concomitant]

REACTIONS (6)
  - Haemolysis [Recovered/Resolved]
  - Deep vein thrombosis [Recovered/Resolved]
  - Skin lesion [Recovered/Resolved]
  - Anaemia [Recovered/Resolved]
  - Anti-erythrocyte antibody positive [Recovered/Resolved]
  - Herpes simplex [Recovered/Resolved]
